FAERS Safety Report 24737887 (Version 1)
Quarter: 2024Q4

REPORT INFORMATION
  Report Type: Spontaneous
  Country: US (occurrence: US)
  Receive Date: 20241216
  Receipt Date: 20241216
  Transmission Date: 20250115
  Serious: No
  Sender: AUROBINDO
  Company Number: US-AUROBINDO-AUR-APL-2023-074571

PATIENT
  Age: 61 Year
  Sex: Male

DRUGS (1)
  1. AMOXICILLIN [Suspect]
     Active Substance: AMOXICILLIN
     Indication: Dental cleaning
     Dosage: 2000 MILLIGRAM (HE TOOK 04 CAPSULES OF 500MG ONE HOUR BEFORE A DENTAL PROCEDURE)
     Route: 065
     Dates: start: 20231018

REACTIONS (1)
  - Drug screen false positive [Not Recovered/Not Resolved]

NARRATIVE: CASE EVENT DATE: 20231018
